FAERS Safety Report 9060830 (Version 1)
Quarter: 2013Q1

REPORT INFORMATION
  Report Type: Spontaneous
  Country: BE (occurrence: BE)
  Receive Date: 20130204
  Receipt Date: 20130204
  Transmission Date: 20140127
  Serious: Yes (Life-Threatening, Other)
  Sender: FDA-Public Use
  Company Number: BE-ASTRAZENECA-2013SE07108

PATIENT
  Sex: Female

DRUGS (2)
  1. BRILIQUE [Suspect]
     Indication: ANGINA UNSTABLE
     Route: 048
  2. BRILIQUE [Suspect]
     Indication: ACUTE MYOCARDIAL INFARCTION
     Route: 048

REACTIONS (2)
  - Aortic dissection [Recovering/Resolving]
  - Haemorrhage [Recovering/Resolving]
